FAERS Safety Report 5479052-6 (Version None)
Quarter: 2007Q4

REPORT INFORMATION
  Report Type: 
  Country: None (occurrence: None)
  Receive Date: 20071006
  Receipt Date: 20070926
  Transmission Date: 20080405
  Serious: Yes (Other)
  Sender: FDA-Public Use
  Company Number: US-PFIZER INC-2007081018

PATIENT
  Sex: Female
  Weight: 86.363 kg

DRUGS (4)
  1. LIPITOR [Suspect]
     Indication: BLOOD CHOLESTEROL INCREASED
  2. FLAGYL [Interacting]
     Indication: VAGINAL INFECTION
     Dates: start: 20070820, end: 20070825
  3. PROGESTERONE [Concomitant]
  4. ESTROGENS [Concomitant]

REACTIONS (7)
  - DRUG INTERACTION [None]
  - ERYTHEMA [None]
  - INSOMNIA [None]
  - SLEEP DISORDER [None]
  - UNEVALUABLE EVENT [None]
  - URTICARIA [None]
  - VAGINAL INFECTION [None]
